FAERS Safety Report 10060575 (Version 3)
Quarter: 2014Q3

REPORT INFORMATION
  Report Type: Report from Study
  Country: DK (occurrence: DK)
  Receive Date: 20140404
  Receipt Date: 20140702
  Transmission Date: 20150326
  Serious: Yes (Hospitalization, Other)
  Sender: FDA-Public Use
  Company Number: PHHY2014DK041161

PATIENT
  Age: 19 Year
  Sex: Male
  Weight: 63 kg

DRUGS (2)
  1. ILARIS [Suspect]
     Active Substance: CANAKINUMAB
     Indication: CHRONIC INFANTILE NEUROLOGICAL CUTANEOUS AND ARTICULAR SYNDROME
     Dosage: 300 MG, QW4
     Route: 058
  2. ILARIS [Suspect]
     Active Substance: CANAKINUMAB
     Dosage: 300 MG, QW3
     Route: 058

REACTIONS (8)
  - Condition aggravated [Unknown]
  - Meningitis [Recovered/Resolved]
  - Musculoskeletal stiffness [Recovered/Resolved]
  - Staphylococcal infection [Recovered/Resolved]
  - Back pain [Recovered/Resolved]
  - Pyrexia [Recovered/Resolved]
  - Chronic infantile neurological cutaneous and articular syndrome [Unknown]
  - Headache [Recovered/Resolved]

NARRATIVE: CASE EVENT DATE: 20130304
